FAERS Safety Report 15281305 (Version 1)
Quarter: 2018Q3

REPORT INFORMATION
  Report Type: Spontaneous
  Country: DE (occurrence: DE)
  Receive Date: 20180815
  Receipt Date: 20180815
  Transmission Date: 20181010
  Serious: Yes (Hospitalization)
  Sender: FDA-Public Use
  Company Number: DE-TEVA-2018-DE-942871

PATIENT
  Age: 47 Year
  Sex: Female

DRUGS (4)
  1. NITROFURANTOIN. [Suspect]
     Active Substance: NITROFURANTOIN
     Indication: BACTERIURIA
     Dosage: 300 MILLIGRAM DAILY; DAILY DOSE: 300 MG MILLGRAM(S) EVERY DAYS
     Route: 048
     Dates: start: 20180618, end: 20180622
  2. PARACETAMOL [Concomitant]
     Active Substance: ACETAMINOPHEN
     Indication: PYREXIA
     Dosage: IF REQUIRED UP TO 2
     Route: 042
     Dates: start: 20180617, end: 20180621
  3. CLEXANE [Concomitant]
     Active Substance: ENOXAPARIN SODIUM
     Indication: THROMBOSIS PROPHYLAXIS
     Dosage: .4 ML DAILY; DAILY DOSE: 0.4 ML MILLILITRE(S) EVERY DAYS
     Route: 058
     Dates: start: 20180618, end: 20180621
  4. UNACID [Concomitant]
     Indication: PYREXIA
     Dosage: 6 GRAM DAILY; DAILY DOSE: 6 G GRAM(S) EVERY DAYS
     Route: 042
     Dates: start: 20180617, end: 20180618

REACTIONS (4)
  - Suicidal ideation [Recovered/Resolved]
  - Psychotic disorder [Recovered/Resolved]
  - Confusional state [Recovered/Resolved]
  - Stupor [Recovered/Resolved]

NARRATIVE: CASE EVENT DATE: 20180621
